FAERS Safety Report 11244597 (Version 1)
Quarter: 2015Q3

REPORT INFORMATION
  Report Type: Spontaneous
  Country: US (occurrence: US)
  Receive Date: 20150707
  Receipt Date: 20150707
  Transmission Date: 20151125
  Serious: No
  Sender: FDA-Public Use
  Company Number: US-PFIZER INC-2015221093

PATIENT
  Age: 80 Year
  Sex: Female
  Weight: 38 kg

DRUGS (5)
  1. GABAPENTIN. [Suspect]
     Active Substance: GABAPENTIN
     Dosage: 2 DF, 1X/DAY, TWO PILLS A DAY FOR THE SECOND WEEK
     Route: 048
  2. CARTIA XT [Concomitant]
     Active Substance: DILTIAZEM HYDROCHLORIDE
     Indication: BLOOD PRESSURE ABNORMAL
     Dosage: 240 MG, 1X/DAY
     Route: 048
  3. GABAPENTIN. [Suspect]
     Active Substance: GABAPENTIN
     Indication: HEADACHE
     Dosage: 100 MG, 1X/DAY, ONE PILL A DAY FOR A WEEK
     Route: 048
     Dates: start: 2015
  4. GABAPENTIN. [Suspect]
     Active Substance: GABAPENTIN
     Dosage: 3 DF, 1X/DAY, THREE PILLS A DAY FOR THE THIRD WEEK
     Route: 048
  5. LORAZEPAM. [Concomitant]
     Active Substance: LORAZEPAM
     Indication: SLEEP DISORDER
     Dosage: 0.5MG TABLET, ONE HALF OF A SCORED TABLET, ONCE AT NIGHT
     Route: 048

REACTIONS (8)
  - Malaise [Not Recovered/Not Resolved]
  - Drug ineffective [Not Recovered/Not Resolved]
  - Emotional distress [Not Recovered/Not Resolved]
  - Dysarthria [Not Recovered/Not Resolved]
  - Somnolence [Not Recovered/Not Resolved]
  - Dizziness [Not Recovered/Not Resolved]
  - Asthenia [Not Recovered/Not Resolved]
  - Fatigue [Not Recovered/Not Resolved]

NARRATIVE: CASE EVENT DATE: 2015
